FAERS Safety Report 5826965-9 (Version None)
Quarter: 2008Q3

REPORT INFORMATION
  Report Type: 
  Country: None (occurrence: None)
  Receive Date: 20080730
  Receipt Date: 20080721
  Transmission Date: 20090109
  Serious: Yes (Hospitalization)
  Sender: FDA-Public Use
  Company Number: US-BAYER-200811418BCC

PATIENT
  Age: 47 Year
  Sex: Female
  Weight: 52 kg

DRUGS (6)
  1. ASPIRIN [Suspect]
     Indication: ISCHAEMIC HEART DISEASE PROPHYLAXIS
     Dosage: UNIT DOSE: 325 MG
  2. LASIX [Concomitant]
  3. MODURETIC 5-50 [Concomitant]
  4. TOPROL-XL [Concomitant]
  5. LIPITOR [Concomitant]
  6. NITROGLYCERIN [Concomitant]

REACTIONS (3)
  - ANGINA PECTORIS [None]
  - ANXIETY [None]
  - MYOCARDIAL INFARCTION [None]
